FAERS Safety Report 11928627 (Version 1)
Quarter: 2016Q1

REPORT INFORMATION
  Report Type: Spontaneous
  Country: US (occurrence: US)
  Receive Date: 20160119
  Receipt Date: 20160119
  Transmission Date: 20160526
  Serious: No
  Sender: FDA-Public Use
  Company Number: US-GLAXOSMITHKLINE-US2016006059

PATIENT
  Sex: Female

DRUGS (2)
  1. NEBULIZER (NAME UNKNOWN) [Concomitant]
     Active Substance: DEVICE
  2. ADVAIR DISKUS [Suspect]
     Active Substance: FLUTICASONE PROPIONATE\SALMETEROL XINAFOATE
     Indication: ASTHMA
     Dosage: UNK UNK, QD

REACTIONS (3)
  - Hypertension [Unknown]
  - Underdose [Unknown]
  - Blood cholesterol increased [Unknown]
